FAERS Safety Report 23437161 (Version 1)
Quarter: 2024Q1

REPORT INFORMATION
  Report Type: Report from Study
  Country: CA (occurrence: CA)
  Receive Date: 20240124
  Receipt Date: 20240124
  Transmission Date: 20240410
  Serious: Yes (Other)
  Sender: FDA-Public Use
  Company Number: CA-002147023-NVSC2023CA026566

PATIENT
  Age: 45 Year
  Sex: Female

DRUGS (1)
  1. KESIMPTA [Suspect]
     Active Substance: OFATUMUMAB
     Indication: Relapsing-remitting multiple sclerosis
     Dosage: 20 MG
     Route: 058
     Dates: start: 20230126

REACTIONS (7)
  - Blindness transient [Unknown]
  - Visual impairment [Recovering/Resolving]
  - Pain in extremity [Unknown]
  - COVID-19 [Unknown]
  - Cough [Unknown]
  - Rhinorrhoea [Unknown]
  - Drug ineffective [Unknown]
